FAERS Safety Report 8158156-3 (Version None)
Quarter: 2012Q1

REPORT INFORMATION
  Report Type: 
  Country: None (occurrence: None)
  Receive Date: 20120222
  Receipt Date: 20120213
  Transmission Date: 20120608
  Serious: Yes (Hospitalization)
  Sender: FDA-Public Use
  Company Number: FR-ASTRAZENECA-2012SE10955

PATIENT
  Age: 63 Year
  Sex: Female

DRUGS (3)
  1. DEPAKENE [Concomitant]
  2. QUETIAPINE FUMARATE [Suspect]
     Indication: BIPOLAR I DISORDER
     Route: 048
     Dates: start: 20120113
  3. TERCIAN [Concomitant]

REACTIONS (4)
  - THROMBOCYTOPENIA [None]
  - CONFUSIONAL STATE [None]
  - NEUTROPENIA [None]
  - LYMPHOPENIA [None]
